FAERS Safety Report 7946353-9 (Version None)
Quarter: 2011Q4

REPORT INFORMATION
  Report Type: 
  Country: None (occurrence: None)
  Receive Date: 20111129
  Receipt Date: 20110916
  Transmission Date: 20120403
  Serious: Yes (Life-Threatening)
  Sender: FDA-Public Use
  Company Number: JP-BAYER-2011-061540

PATIENT
  Age: 48 Year
  Sex: Male
  Weight: 74 kg

DRUGS (15)
  1. BEAUCY S AMEL [Concomitant]
     Dosage: 1 G, UNK
     Route: 048
  2. ZOLPIDEM [Concomitant]
     Dosage: 5 MG, UNK
     Route: 048
  3. CARVEDILOL [Suspect]
     Dosage: 2.5 MG, QD
     Route: 048
     Dates: start: 20110704, end: 20110714
  4. ADALAT [Suspect]
     Dosage: 10 MG, QD
     Route: 048
     Dates: start: 20110704, end: 20110714
  5. CARVEDILOL [Suspect]
     Indication: HYPERTENSION
     Dosage: 75 MG, ONCE, 30 TABLETS
     Route: 048
     Dates: start: 20110715, end: 20110715
  6. ASPIRIN [Concomitant]
     Dosage: 100 MG, UNK
     Route: 048
  7. LORAZEPAM [Concomitant]
     Indication: DEPRESSION
     Dosage: 0.5 MG, UNK
     Route: 048
  8. REBAMIPIDE [Concomitant]
     Route: 048
  9. ALLOPURINOL [Concomitant]
     Dosage: 100 MG, UNK
     Route: 047
  10. DESYREL [Concomitant]
     Dosage: 37.5 MG, UNK
     Route: 048
  11. ADALAT [Suspect]
     Indication: HYPERTENSION
     Dosage: 280 MG, ONCE, 28 TABLETS
     Route: 048
     Dates: start: 20110715, end: 20110715
  12. ALINAMIN F [FURSULTIAMINE] [Concomitant]
     Route: 048
  13. MEILAX [Concomitant]
     Dosage: 2 MG, UNK
     Route: 048
  14. ZYPREXA [Concomitant]
     Dosage: 2.5 MG, UNK
     Route: 048
  15. LOXONIN [Concomitant]
     Dosage: 60 MG, UNK
     Route: 048

REACTIONS (2)
  - HYPOTENSION [None]
  - TOXICITY TO VARIOUS AGENTS [None]
